FAERS Safety Report 12603026 (Version 1)
Quarter: 2016Q3

REPORT INFORMATION
  Report Type: Spontaneous
  Country: BR (occurrence: BR)
  Receive Date: 20160728
  Receipt Date: 20160728
  Transmission Date: 20161109
  Serious: Yes (Other)
  Sender: FDA-Public Use
  Company Number: BR-SA-2016SA135319

PATIENT
  Sex: Female

DRUGS (19)
  1. RIFAMPICIN [Suspect]
     Active Substance: RIFAMPIN
     Route: 048
     Dates: start: 20160530, end: 20160620
  2. TAZOBACTAM/PIPERACILLIN [Suspect]
     Active Substance: PIPERACILLIN SODIUM\TAZOBACTAM SODIUM
     Route: 065
     Dates: start: 20160615, end: 20160624
  3. DIPYRONE [Concomitant]
     Active Substance: DIPYRONE
  4. TRAMAL [Concomitant]
     Active Substance: TRAMADOL
  5. ENOXAPARIN [Concomitant]
     Active Substance: ENOXAPARIN
  6. OMEPRAZOLE. [Concomitant]
     Active Substance: OMEPRAZOLE
  7. CEFUROXIME. [Concomitant]
     Active Substance: CEFUROXIME
     Dates: start: 20160502, end: 20160505
  8. MORPHINE [Concomitant]
     Active Substance: MORPHINE
  9. TEICOPLANIN SODIUM [Suspect]
     Active Substance: TEICOPLANIN
     Route: 065
     Dates: start: 20160519, end: 20160520
  10. CEFTAZIDIME. [Suspect]
     Active Substance: CEFTAZIDIME
     Route: 065
     Dates: start: 20160519, end: 20160530
  11. MEROPENEM. [Suspect]
     Active Substance: MEROPENEM
     Route: 065
     Dates: start: 20160613, end: 20160615
  12. PROPAFENONE. [Concomitant]
     Active Substance: PROPAFENONE
  13. BISACODYL. [Concomitant]
     Active Substance: BISACODYL
  14. AMIKACIN [Concomitant]
     Active Substance: AMIKACIN
     Dates: start: 20160505, end: 20160519
  15. VANCOMYCINE [Suspect]
     Active Substance: VANCOMYCIN
     Route: 042
     Dates: start: 20160530, end: 20160620
  16. CIPROFLOXACIN HYDROCHLORIDE. [Suspect]
     Active Substance: CIPROFLOXACIN HYDROCHLORIDE
     Route: 065
     Dates: start: 20160615, end: 20160616
  17. LOSARTAN. [Concomitant]
     Active Substance: LOSARTAN
  18. VENLAFAXINE [Concomitant]
     Active Substance: VENLAFAXINE HYDROCHLORIDE
  19. TEICOPLANIN SODIUM [Suspect]
     Active Substance: TEICOPLANIN
     Route: 065
     Dates: start: 20160521, end: 20160530

REACTIONS (13)
  - Wheezing [Recovered/Resolved]
  - Eosinophil count increased [Recovered/Resolved]
  - Hyperaemia [Recovered/Resolved]
  - Headache [Recovered/Resolved]
  - Respiratory distress [Recovered/Resolved]
  - Pruritus [Recovered/Resolved]
  - Hypertensive crisis [Recovered/Resolved]
  - Hypersensitivity [Recovered/Resolved]
  - Malaise [Recovered/Resolved]
  - Skin burning sensation [Recovered/Resolved]
  - Rash [Recovered/Resolved]
  - Bronchospasm [Recovered/Resolved]
  - Dyspnoea [Recovered/Resolved]

NARRATIVE: CASE EVENT DATE: 20160523
